FAERS Safety Report 9531811 (Version 1)
Quarter: 2013Q2

REPORT INFORMATION
  Report Type: Spontaneous
  Country: FR (occurrence: None)
  Receive Date: 20130403
  Receipt Date: 20130403
  Transmission Date: 20140414
  Serious: Yes (Other)
  Sender: FDA-Public Use
  Company Number: US-2012-10577

PATIENT
  Age: 52 Year
  Sex: Male

DRUGS (2)
  1. BUSULFEX [Suspect]
     Dosage: 1/DAY
  2. CYCLOPHOSPHAMIDE (CYCLOPHOSPHAMIDE) [Suspect]
     Indication: ALLOGENIC BONE MARROW TRANSPLANTATION THERAPY
     Dosage: 18/DAY

REACTIONS (2)
  - Blood follicle stimulating hormone increased [None]
  - Blood luteinising hormone increased [None]
